FAERS Safety Report 9372101 (Version 1)
Quarter: 2013Q2

REPORT INFORMATION
  Report Type: Report from Study
  Country: US (occurrence: US)
  Receive Date: 20130627
  Receipt Date: 20130627
  Transmission Date: 20140414
  Serious: Yes (Death)
  Sender: FDA-Public Use
  Company Number: US-MYLANLABS-2012S1014879

PATIENT
  Age: 78 Year
  Sex: Male

DRUGS (4)
  1. CLOZAPINE TABLETS [Suspect]
     Route: 048
     Dates: start: 20100401, end: 201105
  2. NAMENDA [Concomitant]
     Route: 048
  3. CARBIDOPA LEVODOPA [Concomitant]
     Dosage: 25MG/100MG
     Route: 048
  4. HALDOL [Concomitant]
     Route: 048

REACTIONS (1)
  - Dementia [Fatal]
